FAERS Safety Report 25172255 (Version 2)
Quarter: 2025Q2

REPORT INFORMATION
  Report Type: Spontaneous
  Country: JP (occurrence: JP)
  Receive Date: 20250408
  Receipt Date: 20250417
  Transmission Date: 20250717
  Serious: Yes (Other)
  Sender: MERZ
  Company Number: JP-teijin-202501319_XE_P_1

PATIENT

DRUGS (1)
  1. XEOMIN [Suspect]
     Active Substance: INCOBOTULINUMTOXINA
     Indication: Skin odour abnormal
     Route: 030

REACTIONS (2)
  - Phyllodes tumour [Unknown]
  - Off label use [Unknown]
